FAERS Safety Report 12950397 (Version 1)
Quarter: 2016Q4

REPORT INFORMATION
  Report Type: Report from Study
  Country: JP (occurrence: JP)
  Receive Date: 20161117
  Receipt Date: 20161117
  Transmission Date: 20170207
  Serious: No
  Sender: FDA-Public Use
  Company Number: JP-UCBSA-2016014205

PATIENT
  Age: 5 Year
  Sex: Female
  Weight: 15.6 kg

DRUGS (22)
  1. DIAPP [Concomitant]
     Active Substance: DIAZEPAM
     Indication: PRODUCT USED FOR UNKNOWN INDICATION
     Dosage: 6 MG DAILY DOSE
     Route: 054
  2. E KEPPRA [Suspect]
     Active Substance: LEVETIRACETAM
     Dosage: 425 MG, 2X/DAY (BID)
     Route: 048
     Dates: start: 20160328, end: 20160803
  3. DEPAKENE [Suspect]
     Active Substance: VALPROIC ACID
     Indication: MYOCLONIC EPILEPSY
     Dosage: 280 MGDAILY
     Route: 048
     Dates: start: 20151201, end: 20160117
  4. E KEPPRA [Suspect]
     Active Substance: LEVETIRACETAM
     Dosage: 175 MG, 2X/DAY (BID)
     Route: 048
     Dates: start: 20150602, end: 20150705
  5. E KEPPRA [Suspect]
     Active Substance: LEVETIRACETAM
     Dosage: 200 MG, 2X/DAY (BID)
     Route: 048
     Dates: start: 20150706, end: 20150810
  6. E KEPPRA [Suspect]
     Active Substance: LEVETIRACETAM
     Dosage: 275 MG, 2X/DAY (BID)
     Route: 048
     Dates: start: 20150907, end: 20151004
  7. DEPAKENE [Suspect]
     Active Substance: VALPROIC ACID
     Indication: COMPLEX PARTIAL SEIZURES
     Dosage: 260 MGDAILY
     Route: 048
     Dates: end: 20151130
  8. E KEPPRA [Suspect]
     Active Substance: LEVETIRACETAM
     Indication: COMPLEX PARTIAL SEIZURES
     Dosage: 50 MG, 2X/DAY (BID)
     Route: 048
     Dates: start: 20150414, end: 20150427
  9. E KEPPRA [Suspect]
     Active Substance: LEVETIRACETAM
     Dosage: 225 MG, 2X/DAY (BID)
     Route: 048
     Dates: start: 20150811, end: 20150824
  10. POTASSIUM BROMIDE [Concomitant]
     Active Substance: POTASSIUM BROMIDE
     Indication: PRODUCT USED FOR UNKNOWN INDICATION
     Dosage: 500 MG  DAILY DOSE
     Route: 048
  11. E KEPPRA [Suspect]
     Active Substance: LEVETIRACETAM
     Indication: MYOCLONIC EPILEPSY
     Dosage: 150 MG, 2X/DAY (BID)
     Route: 048
     Dates: start: 20150518, end: 20150601
  12. E KEPPRA [Suspect]
     Active Substance: LEVETIRACETAM
     Dosage: 400 MG, 2X/DAY (BID)
     Route: 048
     Dates: start: 20160307, end: 20160327
  13. DEPAKENE [Suspect]
     Active Substance: VALPROIC ACID
     Dosage: 280 MG DAILY
     Route: 048
     Dates: start: 20160804
  14. E KEPPRA [Suspect]
     Active Substance: LEVETIRACETAM
     Dosage: 325 MG, 2X/DAY (BID)
     Route: 048
     Dates: start: 20151102, end: 20160208
  15. E KEPPRA [Suspect]
     Active Substance: LEVETIRACETAM
     Indication: GENERALISED TONIC-CLONIC SEIZURE
     Dosage: 100 MG, 2X/DAY (BID)
     Route: 048
     Dates: start: 20150428, end: 20150517
  16. E KEPPRA [Suspect]
     Active Substance: LEVETIRACETAM
     Dosage: 300 MG, 2X/DAY (BID)
     Route: 048
     Dates: start: 20151005, end: 20151101
  17. E KEPPRA [Suspect]
     Active Substance: LEVETIRACETAM
     Dosage: 450 MG, 2X/DAY (BID)
     Route: 048
     Dates: start: 20160804
  18. E KEPPRA [Suspect]
     Active Substance: LEVETIRACETAM
     Dosage: 250 MG, 2X/DAY (BID)
     Route: 048
     Dates: start: 20150825, end: 20150906
  19. E KEPPRA [Suspect]
     Active Substance: LEVETIRACETAM
     Dosage: 350 MG, 2X/DAY (BID)
     Route: 048
     Dates: start: 20160209, end: 20160306
  20. DEPAKENE [Suspect]
     Active Substance: VALPROIC ACID
     Indication: GENERALISED TONIC-CLONIC SEIZURE
     Dosage: 300 MG DAILY
     Route: 048
     Dates: start: 20160118, end: 20160803
  21. MYSTAN [Concomitant]
     Active Substance: CLOBAZAM
     Indication: PRODUCT USED FOR UNKNOWN INDICATION
     Dosage: 2 MG DAILY DOSE
     Route: 048
  22. DIACOMIT [Concomitant]
     Active Substance: STIRIPENTOL
     Indication: PRODUCT USED FOR UNKNOWN INDICATION
     Dosage: 325 MG DAILY DOSE
     Route: 048
     Dates: end: 20150906

REACTIONS (3)
  - Upper respiratory tract inflammation [Recovered/Resolved]
  - Impetigo [Recovered/Resolved]
  - Platelet count decreased [Recovered/Resolved]

NARRATIVE: CASE EVENT DATE: 20160209
